FAERS Safety Report 9265750 (Version 1)
Quarter: 2013Q2

REPORT INFORMATION
  Report Type: Spontaneous
  Country: US (occurrence: US)
  Receive Date: 20130501
  Receipt Date: 20130501
  Transmission Date: 20140414
  Serious: No
  Sender: FDA-Public Use
  Company Number: US-ASTRAZENECA-2013SE22543

PATIENT
  Age: 71 Year
  Sex: Female

DRUGS (4)
  1. TOPROL XL [Suspect]
     Indication: STENT PLACEMENT
     Route: 048
     Dates: start: 2002
  2. TOPROL XL [Suspect]
     Indication: STENT PLACEMENT
     Dosage: GENERIC
     Route: 048
  3. TOPROL XL [Suspect]
     Indication: STENT PLACEMENT
     Dosage: MANUFACTURED BY PAR
     Route: 048
  4. XANAX [Concomitant]
     Indication: ANXIETY

REACTIONS (2)
  - Dyspepsia [Recovered/Resolved]
  - Abdominal pain upper [Recovered/Resolved]
